FAERS Safety Report 20316062 (Version 3)
Quarter: 2022Q2

REPORT INFORMATION
  Report Type: Report from Study
  Country: US (occurrence: US)
  Receive Date: 20220110
  Receipt Date: 20220511
  Transmission Date: 20220721
  Serious: Yes (Hospitalization, Other)
  Sender: FDA-Public Use
  Company Number: US-BIOGEN-2022BI01084323

PATIENT
  Age: 52 Year
  Sex: Female

DRUGS (21)
  1. TYSABRI [Suspect]
     Active Substance: NATALIZUMAB
     Indication: Multiple sclerosis
     Route: 065
     Dates: start: 20190131
  2. TYSABRI [Suspect]
     Active Substance: NATALIZUMAB
     Route: 065
     Dates: start: 20210811
  3. AMPYRA [Suspect]
     Active Substance: DALFAMPRIDINE
     Indication: Gait disturbance
     Route: 065
  4. DALFAMPRIDINE [Suspect]
     Active Substance: DALFAMPRIDINE
     Indication: Gait disturbance
     Route: 048
     Dates: start: 20210811
  5. BACLOFEN [Concomitant]
     Active Substance: BACLOFEN
     Indication: Muscle spasticity
     Route: 048
     Dates: start: 20210811
  6. OXYBUTYNIN CHLORIDE [Concomitant]
     Active Substance: OXYBUTYNIN CHLORIDE
     Indication: Micturition urgency
     Route: 048
  7. OXYBUTYNIN CHLORIDE [Concomitant]
     Active Substance: OXYBUTYNIN CHLORIDE
     Route: 048
  8. MELOXICAM [Concomitant]
     Active Substance: MELOXICAM
     Indication: Product used for unknown indication
     Route: 048
     Dates: start: 20210727
  9. Sertraline HCI [Concomitant]
     Indication: Product used for unknown indication
     Route: 048
     Dates: start: 20210811
  10. Bayer Aspirin EC Low Dose [Concomitant]
     Indication: Product used for unknown indication
     Route: 048
  11. VITAMIN D [Concomitant]
     Active Substance: VITAMIN D NOS
     Indication: Product used for unknown indication
     Route: 048
  12. POLYETHYLENE GLYCOL [Concomitant]
     Active Substance: POLYETHYLENE GLYCOL
     Indication: Constipation
     Dosage: TAKE 17 G BY MOUTH DAILY AS NEEDED (CONSTIPATION)
     Route: 048
  13. NYSTATIN [Concomitant]
     Active Substance: NYSTATIN
     Indication: Product used for unknown indication
     Dosage: APPLY TOPICALLY 3 (THREE) TIMES DAILY
     Route: 061
  14. NICOTINE [Concomitant]
     Active Substance: NICOTINE
     Indication: Product used for unknown indication
     Dosage: PLACE 1 PATCH ONTO THE SKIN EVERY 24 HOURS
     Route: 065
  15. LISINOPRIL [Concomitant]
     Active Substance: LISINOPRIL
     Indication: Product used for unknown indication
     Dosage: TAKE 1 TABLET (20 MG TOTAL) BY MOUTH DAILY
     Route: 048
  16. ACETAMINOPHEN [Concomitant]
     Active Substance: ACETAMINOPHEN
     Indication: Pain
     Dosage: TAKE 1,000 MG BY MOUTH EVERY 4 (FOUR) HOURS AS NEEDED FOR PAIN
     Route: 048
  17. ACETAMINOPHEN [Concomitant]
     Active Substance: ACETAMINOPHEN
     Dosage: TAKE 1 TABLET (20 MG TOTAL) BY MOUTH DAILY
     Route: 048
  18. ASCORBIC ACID [Concomitant]
     Active Substance: ASCORBIC ACID
     Indication: Product used for unknown indication
     Dosage: TAKE 1,000 MG BY MOUTH DAILY
     Route: 048
  19. ENOXAPARIN [Concomitant]
     Active Substance: ENOXAPARIN
     Indication: Product used for unknown indication
     Dosage: INJECT 0.4 MLS (40 MG TOTAL) INTO THE SKIN DAILY FOR 27 DOSES
     Route: 058
  20. GABAPENTIN [Concomitant]
     Active Substance: GABAPENTIN
     Indication: Product used for unknown indication
     Dosage: TAKE 300 MG BY MOUTH 3 (THREE) TIMES DAILY
     Route: 048
  21. OXYCODONE [Concomitant]
     Active Substance: OXYCODONE
     Indication: Product used for unknown indication
     Dosage: TAKE 1 TABLET (5 MG TOTAL) BY MOUTH EVERY 6 (SIX) HOURS AS NEEDED FOR PAIN
     Route: 048

REACTIONS (12)
  - Adenocarcinoma of colon [Unknown]
  - Colorectal adenoma [Unknown]
  - Urinary tract infection [Unknown]
  - Multiple sclerosis relapse [Unknown]
  - Dyspnoea [Recovered/Resolved]
  - Chest pain [Recovered/Resolved]
  - Hepatic cancer [Unknown]
  - Hepatic cirrhosis [Unknown]
  - Hypoaesthesia [Unknown]
  - Nephrolithiasis [Recovered/Resolved]
  - Palpitations [Unknown]
  - Atelectasis [Unknown]

NARRATIVE: CASE EVENT DATE: 20200201
